FAERS Safety Report 22379538 (Version 1)
Quarter: 2023Q2

REPORT INFORMATION
  Report Type: Spontaneous
  Country: CH (occurrence: CH)
  Receive Date: 20230529
  Receipt Date: 20230529
  Transmission Date: 20230722
  Serious: Yes (Other)
  Sender: FDA-Public Use
  Company Number: None

PATIENT
  Age: 67 Year
  Sex: Female

DRUGS (4)
  1. SULFASALAZINE [Suspect]
     Active Substance: SULFASALAZINE
     Indication: Oligoarthritis
     Dosage: 500 MG, 2X/DAY
     Route: 048
     Dates: start: 20230214, end: 20230312
  2. SULFASALAZINE [Suspect]
     Active Substance: SULFASALAZINE
     Indication: Polyarthritis
  3. PREDNISOLONE [Concomitant]
     Active Substance: PREDNISOLONE
     Indication: Oligoarthritis
     Dosage: 5 MG, 1X/DAY
     Route: 048
  4. EUTHYROX [Concomitant]
     Active Substance: LEVOTHYROXINE SODIUM
     Indication: Autoimmune thyroiditis
     Dosage: 25 UG, 1X/DAY
     Route: 048

REACTIONS (12)
  - Rash [Recovering/Resolving]
  - Skin burning sensation [Unknown]
  - Telangiectasia [Unknown]
  - Fatigue [Recovered/Resolved]
  - Erythema [Unknown]
  - Feeling hot [Unknown]
  - Swelling face [Unknown]
  - Insomnia [Unknown]
  - Pruritus [Unknown]
  - Pyrexia [Unknown]
  - Hepatic enzyme abnormal [Unknown]
  - Gamma-glutamyltransferase increased [Unknown]

NARRATIVE: CASE EVENT DATE: 20230311
